FAERS Safety Report 7588071-5 (Version None)
Quarter: 2011Q3

REPORT INFORMATION
  Report Type: 
  Country: None (occurrence: None)
  Receive Date: 20110705
  Receipt Date: 20110630
  Transmission Date: 20111222
  Serious: No
  Sender: FDA-Public Use
  Company Number: US-PFIZER INC-2011146521

PATIENT
  Sex: Female
  Weight: 58.957 kg

DRUGS (1)
  1. ADVIL LIQUI-GELS [Suspect]
     Indication: INFLAMMATION
     Dosage: 600 MG, 3X/DAY
     Route: 048
     Dates: end: 20110629

REACTIONS (1)
  - ABDOMINAL PAIN [None]
